FAERS Safety Report 7549674-7 (Version None)
Quarter: 2011Q2

REPORT INFORMATION
  Report Type: 
  Country: None (occurrence: None)
  Receive Date: 20110615
  Receipt Date: 20110131
  Transmission Date: 20111010
  Serious: No
  Sender: FDA-Public Use
  Company Number: US-BRISTOL-MYERS SQUIBB COMPANY-15519341

PATIENT
  Sex: Female

DRUGS (1)
  1. FOSINOPRIL SODIUM [Suspect]
     Dosage: STARTED ON LAST WINTER JAN/FEB2010
     Dates: start: 20100101

REACTIONS (1)
  - DRUG INEFFECTIVE [None]
